FAERS Safety Report 8761228 (Version 1)
Quarter: 2012Q4

REPORT INFORMATION
  Report Type: 
  Country: BR (occurrence: BR)
  Receive Date: 20120830
  Receipt Date: 20120830
  Transmission Date: 20130627
  Serious: Yes (Other)
  Sender: FDA-Public Use
  Company Number: BR-GLAXOSMITHKLINE-A0991349A

PATIENT
  Age: 5 Year
  Sex: Male

DRUGS (4)
  1. SERETIDE [Suspect]
     Indication: RHINITIS
     Route: 055
     Dates: start: 20120714
  2. MONTELUKAST [Suspect]
     Indication: PRODUCT USED FOR UNKNOWN INDICATION
     Dosage: 1SAC At night
     Dates: start: 20120714
  3. NASONEX [Concomitant]
     Route: 045
     Dates: start: 201109
  4. AFRIN [Concomitant]
     Dosage: 2DROP Twice per day
     Route: 045

REACTIONS (7)
  - Aggression [Not Recovered/Not Resolved]
  - Cough [Not Recovered/Not Resolved]
  - Rhinorrhoea [Not Recovered/Not Resolved]
  - Dyspnoea [Not Recovered/Not Resolved]
  - Agitation [Not Recovered/Not Resolved]
  - Sleep disorder [Not Recovered/Not Resolved]
  - Drug ineffective [Not Recovered/Not Resolved]
